FAERS Safety Report 6849311-0 (Version None)
Quarter: 2010Q3

REPORT INFORMATION
  Report Type: 
  Country: None (occurrence: None)
  Receive Date: 20100716
  Receipt Date: 20070929
  Transmission Date: 20110219
  Serious: No
  Sender: FDA-Public Use
  Company Number: US-PFIZER INC-2007082247

PATIENT
  Sex: Female
  Weight: 63.6 kg

DRUGS (7)
  1. CHANTIX [Suspect]
     Indication: SMOKING CESSATION THERAPY
     Dates: start: 20070801, end: 20070101
  2. COMBIVENT [Concomitant]
  3. VALSARTAN [Concomitant]
  4. VYTORIN [Concomitant]
  5. NEXIUM [Concomitant]
  6. DETROL LA [Concomitant]
  7. ACETYLSALICYLIC ACID [Concomitant]

REACTIONS (2)
  - MALAISE [None]
  - NIGHTMARE [None]
